FAERS Safety Report 9286642 (Version 1)
Quarter: 2013Q2

REPORT INFORMATION
  Report Type: Spontaneous
  Country: US (occurrence: None)
  Receive Date: 20130508
  Receipt Date: 20130508
  Transmission Date: 20140414
  Serious: Yes (Other)
  Sender: FDA-Public Use
  Company Number: DAV-AE-HCTZ-13-03

PATIENT
  Age: 78 Year
  Sex: 0

DRUGS (2)
  1. HYDROCHLOROTHIAZIDE [Suspect]
  2. DIGOXIN [Suspect]

REACTIONS (1)
  - Drug interaction [None]
